FAERS Safety Report 4591105-3 (Version None)
Quarter: 2005Q1

REPORT INFORMATION
  Report Type: 
  Country: None (occurrence: None)
  Receive Date: 20050225
  Receipt Date: 20050215
  Transmission Date: 20050727
  Serious: Yes (Other)
  Sender: FDA-Public Use
  Company Number: PHHO2005JP02867

PATIENT
  Age: 45 Year
  Sex: Female
  Weight: 44 kg

DRUGS (9)
  1. PREDONINE [Suspect]
     Indication: LUNG TRANSPLANT
     Dosage: 25MG DAILY
     Dates: start: 20021225
  2. IMURAN [Suspect]
     Indication: LUNG TRANSPLANT
     Dosage: 50MG DAILY
     Dates: start: 20021225, end: 20030207
  3. IMURAN [Suspect]
     Dosage: 50 MG DAILY
     Dates: start: 20030219, end: 20030304
  4. CELLCEPT [Suspect]
     Indication: LUNG TRANSPLANT
     Dosage: 1.5 G DAILY DOSE
     Dates: start: 20030305
  5. BAKTAR [Concomitant]
  6. DIFLUCAN [Concomitant]
  7. GASTER [Concomitant]
  8. NEORAL [Suspect]
     Indication: LUNG TRANSPLANT
     Dosage: 300MG DAILY DOSE
     Dates: start: 20021225, end: 20030224
  9. NEORAL [Suspect]
     Dosage: 200MG DAILY DOSE
     Dates: start: 20030225

REACTIONS (4)
  - CYTOMEGALOVIRUS ANTIGEN POSITIVE [None]
  - LUNG TRANSPLANT REJECTION [None]
  - OSTEOPOROTIC FRACTURE [None]
  - WHITE BLOOD CELL COUNT DECREASED [None]
